FAERS Safety Report 10231459 (Version 2)
Quarter: 2014Q2

REPORT INFORMATION
  Report Type: Spontaneous
  Country: CA (occurrence: CA)
  Receive Date: 20140611
  Receipt Date: 20140611
  Transmission Date: 20141212
  Serious: Yes (Other)
  Sender: FDA-Public Use
  Company Number: CA-PFIZER INC-2014111465

PATIENT
  Age: 62 Year
  Sex: Female
  Weight: 64.4 kg

DRUGS (3)
  1. MOTRIN IB [Suspect]
     Dosage: 200 MG, UNK
  2. LUMIGAN [Concomitant]
     Route: 047
  3. NAPROXEN [Concomitant]

REACTIONS (1)
  - Blood urine [Unknown]
